FAERS Safety Report 9733307 (Version 3)
Quarter: 2014Q1

REPORT INFORMATION
  Report Type: Spontaneous
  Country: US (occurrence: US)
  Receive Date: 20131205
  Receipt Date: 20140128
  Transmission Date: 20141002
  Serious: Yes (Death, Other)
  Sender: FDA-Public Use
  Company Number: US-PFIZER INC-2013345810

PATIENT
  Age: 43 Year
  Sex: Male
  Weight: 88.89 kg

DRUGS (2)
  1. REVATIO [Suspect]
     Indication: PULMONARY HYPERTENSION
     Dosage: 20 MG, 3X/DAY
     Route: 048
     Dates: start: 20131012
  2. ALLOPURINOL [Suspect]
     Dosage: UNK

REACTIONS (2)
  - Stevens-Johnson syndrome [Fatal]
  - Laboratory test abnormal [Unknown]
